FAERS Safety Report 7764367 (Version 3)
Quarter: 2014Q3

REPORT INFORMATION
  Report Type: Report from Study
  Country: US (occurrence: US)
  Receive Date: 20110118
  Receipt Date: 20140825
  Transmission Date: 20150326
  Serious: Yes (Hospitalization, Other)
  Sender: FDA-Public Use
  Company Number: US-MILLENNIUM PHARMACEUTICALS, INC.-2011-00129

PATIENT
  Age: 80 Year
  Sex: Female
  Weight: 67.12 kg

DRUGS (1)
  1. VELCADE [Suspect]
     Active Substance: BORTEZOMIB
     Indication: PLASMA CELL MYELOMA
     Dosage: 2.2 MG, DAY 1,4,8,11
     Route: 040
     Dates: start: 20101109, end: 20101220

REACTIONS (1)
  - Intestinal infarction [Unknown]

NARRATIVE: CASE EVENT DATE: 20101223
